FAERS Safety Report 4998471-5 (Version None)
Quarter: 2006Q2

REPORT INFORMATION
  Report Type: 
  Country: None (occurrence: None)
  Receive Date: 20060508
  Receipt Date: 20060420
  Transmission Date: 20061013
  Serious: Yes (Hospitalization)
  Sender: FDA-Public Use
  Company Number: DSA_28107_2006

PATIENT
  Age: 59 Year
  Sex: Male

DRUGS (1)
  1. ENALAPRIL [Suspect]
     Indication: HYPERTENSION
     Dosage: 10 MG BID

REACTIONS (10)
  - BLOOD URIC ACID INCREASED [None]
  - DERMATITIS EXFOLIATIVE [None]
  - HYPERKERATOSIS [None]
  - NAIL DISORDER [None]
  - NAIL PITTING [None]
  - PSORIASIS [None]
  - PSORIATIC ARTHROPATHY [None]
  - RED BLOOD CELL SEDIMENTATION RATE INCREASED [None]
  - SKIN FISSURES [None]
  - TUBULOINTERSTITIAL NEPHRITIS [None]
